FAERS Safety Report 7865178-6 (Version None)
Quarter: 2011Q4

REPORT INFORMATION
  Report Type: 
  Country: None (occurrence: None)
  Receive Date: 20111028
  Receipt Date: 20101027
  Transmission Date: 20120403
  Serious: No
  Sender: FDA-Public Use
  Company Number: US-GLAXOSMITHKLINE-A0889118A

PATIENT
  Age: 87 Year
  Sex: Female

DRUGS (3)
  1. ADVAIR DISKUS 100/50 [Suspect]
  2. VENTOLIN [Concomitant]
  3. FLU SHOT [Suspect]
     Dates: start: 20101026

REACTIONS (1)
  - COUGH [None]
